FAERS Safety Report 6147655-1 (Version None)
Quarter: 2009Q2

REPORT INFORMATION
  Report Type: 
  Country: None (occurrence: None)
  Receive Date: 20090408
  Receipt Date: 20090326
  Transmission Date: 20091009
  Serious: Yes (Other)
  Sender: FDA-Public Use
  Company Number: PHHY2009US12199

PATIENT
  Sex: Female

DRUGS (8)
  1. CLIMARA [Suspect]
     Indication: MENOPAUSE
     Dosage: 0.05 MG
     Route: 062
     Dates: start: 19990101, end: 20000101
  2. PROMETRIUM [Suspect]
     Indication: MENOPAUSE
     Dosage: 100 MG DAILY
     Dates: start: 19990101, end: 20070601
  3. VIVELLE-DOT [Suspect]
     Indication: MENOPAUSE
     Dosage: UNK
     Dates: start: 19990101, end: 20070601
  4. ZOCOR [Concomitant]
     Indication: HYPERTENSION
     Dosage: UNK
     Dates: start: 19900101
  5. CITALOPRAM HYDROBROMIDE [Concomitant]
     Indication: DEPRESSION
     Dosage: UNK
     Dates: start: 19900101
  6. TAMOXIFEN CITRATE [Concomitant]
     Indication: BREAST CANCER
  7. NORVASC [Concomitant]
     Indication: HYPERTENSION
     Dosage: UNK
     Dates: start: 19900101
  8. LEVOXYL [Concomitant]
     Indication: HYPOTHYROIDISM
     Dosage: UNK
     Dates: start: 19880101

REACTIONS (7)
  - ARTHRALGIA [None]
  - ARTHRITIS [None]
  - BASAL CELL CARCINOMA [None]
  - BIOPSY BREAST ABNORMAL [None]
  - BREAST CANCER [None]
  - LESION EXCISION [None]
  - ULTRASOUND BREAST ABNORMAL [None]
